FAERS Safety Report 8441691-8 (Version None)
Quarter: 2012Q2

REPORT INFORMATION
  Report Type: 
  Country: None (occurrence: None)
  Receive Date: 20120615
  Receipt Date: 20120608
  Transmission Date: 20120825
  Serious: Yes (Other)
  Sender: FDA-Public Use
  Company Number: DE-B.I. PHARMACEUTICALS,INC./RIDGEFIELD-2012-DE-00815DE

PATIENT
  Sex: Male
  Weight: 78 kg

DRUGS (14)
  1. MAGNESIUM [Concomitant]
     Indication: MUSCLE SPASMS
     Dosage: MAX 300 MG
  2. VENOSTASIN [Concomitant]
     Indication: VARICOSE VEIN
     Dosage: 1 ANZ
  3. CLOPIDOGREL [Concomitant]
     Indication: CORONARY ARTERY DISEASE
  4. MICTONORM [Concomitant]
     Indication: DEPRESSION
     Dosage: AS REQUIRED
  5. BISOPROLOL FUMARATE [Concomitant]
     Indication: HYPERTENSION
     Dosage: 2 ANZ
  6. MICARDIS HCT [Concomitant]
     Indication: HYPERTENSION
     Dosage: 1 ANZ
  7. PANTOPRAZOLE [Concomitant]
     Indication: GASTRITIS
     Dosage: 1 ANZ
  8. RAMIPRIL [Concomitant]
     Indication: HYPERTENSION
     Dosage: 2 ANZ
  9. CLOPIDOGREL [Concomitant]
     Indication: STENT PLACEMENT
  10. TAVOR EXP. [Concomitant]
     Indication: ANXIETY
  11. PROSTAGUTT FORTE [Concomitant]
     Indication: BENIGN PROSTATIC HYPERPLASIA
     Dosage: 1 ANZ
  12. PRADAXA [Suspect]
     Indication: ATRIAL FIBRILLATION
     Dosage: 300 MG
     Dates: start: 20110901
  13. LIMPTAR [Concomitant]
     Indication: MUSCLE SPASMS
     Dosage: 1 ANZ
  14. GINGIUM INTENS [Concomitant]
     Indication: CEREBROVASCULAR ACCIDENT
     Dosage: 1 ANZ

REACTIONS (2)
  - MUSCULAR WEAKNESS [None]
  - CEREBROVASCULAR ACCIDENT [None]
